FAERS Safety Report 5458694-8 (Version None)
Quarter: 2007Q3

REPORT INFORMATION
  Report Type: 
  Country: None (occurrence: None)
  Receive Date: 20070919
  Receipt Date: 20070416
  Transmission Date: 20080115
  Serious: No
  Sender: FDA-Public Use
  Company Number: US-ASTRAZENECA-2007UW07436

PATIENT
  Age: 65 Year
  Sex: Male
  Weight: 64.9 kg

DRUGS (2)
  1. SEROQUEL [Suspect]
     Indication: ANTIDEPRESSANT THERAPY
     Route: 048
  2. AMBIEN [Concomitant]

REACTIONS (3)
  - ANXIETY [None]
  - DRY MOUTH [None]
  - FATIGUE [None]
